FAERS Safety Report 12655104 (Version 1)
Quarter: 2016Q3

REPORT INFORMATION
  Report Type: Spontaneous
  Country: US (occurrence: US)
  Receive Date: 20160816
  Receipt Date: 20160816
  Transmission Date: 20161109
  Serious: No
  Sender: FDA-Public Use
  Company Number: US-PFIZER INC-2642806

PATIENT
  Age: 71 Year
  Sex: Male
  Weight: 83.5 kg

DRUGS (2)
  1. GEMCITABINE HYDROCHLORIDE. [Suspect]
     Active Substance: GEMCITABINE HYDROCHLORIDE
     Indication: GALLBLADDER CANCER
     Dosage: 1900 MG, DAY 1 AND 8, EVERY 21 DAYS, FREQ: CYCLICAL
     Route: 041
     Dates: start: 20141119, end: 20141119
  2. CISPLATIN. [Concomitant]
     Active Substance: CISPLATIN
     Indication: GALLBLADDER CANCER
     Dosage: 48 MG, DAY 1 AND 8, EVERY 21DAYS, FREQ: CYCLICAL
     Route: 041

REACTIONS (1)
  - Infusion site pain [Recovered/Resolved]

NARRATIVE: CASE EVENT DATE: 20141119
